FAERS Safety Report 9240865 (Version 1)
Quarter: 2013Q2

REPORT INFORMATION
  Report Type: Spontaneous
  Country: US (occurrence: None)
  Receive Date: 20130418
  Receipt Date: 20130418
  Transmission Date: 20140414
  Serious: Yes (Other)
  Sender: FDA-Public Use
  Company Number: None

PATIENT
  Age: 56 Year
  Sex: Female
  Weight: 79.38 kg

DRUGS (1)
  1. BUPROPION HYDROCHLORIDE (XL) [Suspect]
     Indication: DEPRESSION
     Dosage: 1 TAB, 1 X A DAY, PO
     Route: 048
     Dates: start: 20130319, end: 20130414

REACTIONS (5)
  - Product substitution issue [None]
  - Product substitution issue [None]
  - Product quality issue [None]
  - Drug effect decreased [None]
  - Depression [None]
